FAERS Safety Report 8899947 (Version 1)
Quarter: 2012Q4

REPORT INFORMATION
  Report Type: 
  Country: US (occurrence: US)
  Receive Date: 20121108
  Receipt Date: 20121108
  Transmission Date: 20130627
  Serious: No
  Sender: FDA-Public Use
  Company Number: US-AMGEN-USASP2012031626

PATIENT
  Sex: Female
  Weight: 88.44 kg

DRUGS (9)
  1. ENBREL [Suspect]
     Indication: PRODUCT USED FOR UNKNOWN INDICATION
     Dosage: 50 mg, qwk
     Route: 058
  2. PLAQUENIL                          /00072603/ [Concomitant]
     Dosage: 200 mg, UNK
  3. CELEBREX [Concomitant]
     Dosage: 100 mg, UNK
  4. SERTRALINE [Concomitant]
     Dosage: 25 mg, UNK
  5. PREDNISONE [Concomitant]
     Dosage: 2.5 mg, UNK
  6. OMEPRAZOLE [Concomitant]
     Dosage: 10 mg, UNK
  7. CALCIUM [Concomitant]
  8. FOLIC ACID [Concomitant]
     Dosage: 20 mg, UNK
  9. METHOTREXATE [Concomitant]

REACTIONS (3)
  - Skin striae [Unknown]
  - Injection site pain [Unknown]
  - Injection site bruising [Unknown]
